FAERS Safety Report 8122150-9 (Version None)
Quarter: 2012Q1

REPORT INFORMATION
  Report Type: 
  Country: None (occurrence: None)
  Receive Date: 20120208
  Receipt Date: 20120202
  Transmission Date: 20120608
  Serious: Yes (Death, Hospitalization)
  Sender: FDA-Public Use
  Company Number: US-GILEAD-2012-0050320

PATIENT
  Age: 64 Year
  Sex: Male

DRUGS (3)
  1. REVATIO [Concomitant]
  2. REMODULIN [Concomitant]
  3. LETAIRIS [Suspect]
     Indication: PULMONARY HYPERTENSION
     Dosage: 5 MG, UNK
     Route: 048
     Dates: start: 20120113

REACTIONS (2)
  - PULMONARY ARTERIAL HYPERTENSION [None]
  - DEATH [None]
